FAERS Safety Report 5368790-1 (Version None)
Quarter: 2007Q2

REPORT INFORMATION
  Report Type: 
  Country: None (occurrence: None)
  Receive Date: 20070622
  Receipt Date: 20070622
  Transmission Date: 20071010
  Serious: Yes (Life-Threatening, Other)
  Sender: FDA-Public Use
  Company Number: None

PATIENT
  Age: 46 Year
  Sex: Female
  Weight: 90.7194 kg

DRUGS (2)
  1. LEVAQUIN [Suspect]
     Indication: BREAST CYST
     Dosage: 500 MG SID FOR 20 DAYS  PO
     Route: 048
     Dates: start: 20061219, end: 20070108
  2. LEVAQUIN [Suspect]
     Indication: BREAST ABSCESS
     Dosage: 750 MG SID FOR 10 DAYS  PO
     Route: 048
     Dates: start: 20070308, end: 20070317

REACTIONS (2)
  - EXTRASYSTOLES [None]
  - VENTRICULAR ARRHYTHMIA [None]
